FAERS Safety Report 9693954 (Version 1)
Quarter: 2013Q4

REPORT INFORMATION
  Report Type: Spontaneous
  Country: GB (occurrence: None)
  Receive Date: 20131114
  Receipt Date: 20131114
  Transmission Date: 20140711
  Serious: Yes (Hospitalization, Other)
  Sender: FDA-Public Use
  Company Number: GB-AIKEM-000215

PATIENT
  Age: 48 Year
  Sex: Male

DRUGS (16)
  1. QUETIAPINE [Suspect]
     Indication: BIPOLAR DISORDER
     Route: 048
  2. MONTELUKAST (MONTELUKAST) [Concomitant]
  3. ANGITIL (ANGITIL) [Concomitant]
  4. ZOPICLONE (ZOPICLONE) [Concomitant]
  5. ASPIRIN (ASPIRIN) [Concomitant]
  6. FLUTICASONE (FLUTICASONE) [Concomitant]
  7. ATORVASTATIN (ATORVASTATIN) [Concomitant]
  8. MOMETASONE (MOMETASONE) [Concomitant]
  9. PREGABALIN (PREGABALIN) [Concomitant]
  10. OMEPRAZOLE (OMEPRAZOLE) [Concomitant]
  11. LAMOTRIGINE (LAMOTRIGINE) [Concomitant]
  12. NYSTATIN (NYSTATIN) [Concomitant]
  13. TRAMADOL (TRAMADOL) [Concomitant]
  14. SALBUTAMOL (SALBUTAMOL) [Concomitant]
  15. GABAPENTIN (GABAPENTIN) [Concomitant]
  16. CHLORHEXIDINE (CHLORHEXIDINE) [Concomitant]

REACTIONS (6)
  - Muscular weakness [None]
  - Dysarthria [None]
  - Facial paresis [None]
  - Vertigo [None]
  - Dizziness [None]
  - Vision blurred [None]
